FAERS Safety Report 8196645-6 (Version None)
Quarter: 2012Q1

REPORT INFORMATION
  Report Type: 
  Country: None (occurrence: None)
  Receive Date: 20120229
  Receipt Date: 20111130
  Transmission Date: 20120608
  Serious: Yes (Other)
  Sender: FDA-Public Use
  Company Number: US-2011-10600

PATIENT
  Age: 59 Year
  Sex: Male

DRUGS (14)
  1. FUROSEMIDE (FUROSEMIDE) [Concomitant]
  2. METAMUCIL-2 [Concomitant]
  3. METOPROLOL TARTRATE [Concomitant]
  4. NEXIUM [Concomitant]
  5. NOVOLOG [Concomitant]
  6. LANTUS [Concomitant]
  7. ALTACE [Concomitant]
  8. FOLIC ACID [Concomitant]
  9. JANUVIA [Concomitant]
  10. METOLAZONE [Concomitant]
  11. POTASSIUM CHLORIDE [Concomitant]
  12. SAMSCA [Suspect]
     Indication: HYPERVOLAEMIA
     Dosage: 15 MG MILLIGRAM(S), QD, ORAL
     Route: 048
     Dates: start: 20110801
  13. ALLOPURINOL [Concomitant]
  14. MAGNESIUM (ALUMINUM HYDROXIDE, MAGNESIUIM HYDROXIDE) [Concomitant]

REACTIONS (4)
  - BLOOD GLUCOSE INCREASED [None]
  - VISUAL IMPAIRMENT [None]
  - HEARING IMPAIRED [None]
  - WEIGHT INCREASED [None]
